FAERS Safety Report 7798750-2 (Version None)
Quarter: 2011Q4

REPORT INFORMATION
  Report Type: 
  Country: None (occurrence: None)
  Receive Date: 20111006
  Receipt Date: 20110928
  Transmission Date: 20120403
  Serious: No
  Sender: FDA-Public Use
  Company Number: US-BIOGENIDEC-2011BI037412

PATIENT
  Sex: Female

DRUGS (1)
  1. AVONEX [Suspect]
     Indication: MULTIPLE SCLEROSIS
     Route: 030
     Dates: start: 20110109

REACTIONS (9)
  - HEADACHE [None]
  - HYPERHIDROSIS [None]
  - MYALGIA [None]
  - NERVE ROOT COMPRESSION [None]
  - FATIGUE [None]
  - DEPRESSED MOOD [None]
  - DEPRESSION [None]
  - MUSCULAR WEAKNESS [None]
  - DYSPNOEA EXERTIONAL [None]
